FAERS Safety Report 22116845 (Version 2)
Quarter: 2023Q2

REPORT INFORMATION
  Report Type: Report from Study
  Country: IN (occurrence: IN)
  Receive Date: 20230320
  Receipt Date: 20230404
  Transmission Date: 20230721
  Serious: Yes (Hospitalization)
  Sender: FDA-Public Use
  Company Number: IN-JNJFOC-20230328741

PATIENT
  Age: 44 Year
  Sex: Female

DRUGS (8)
  1. AMIVANTAMAB [Suspect]
     Active Substance: AMIVANTAMAB
     Indication: Non-small cell lung cancer metastatic
     Route: 042
     Dates: start: 20220907, end: 20230218
  2. CARBOPLATIN [Concomitant]
     Active Substance: CARBOPLATIN
     Indication: Non-small cell lung cancer metastatic
     Route: 042
     Dates: start: 20210623, end: 20210823
  3. PEMETREXED [Concomitant]
     Active Substance: PEMETREXED
     Indication: Non-small cell lung cancer metastatic
     Route: 042
     Dates: start: 20210623, end: 20220714
  4. CALCIUM\CHOLECALCIFEROL [Concomitant]
     Active Substance: CALCIUM\CHOLECALCIFEROL
     Indication: Prophylaxis
     Route: 048
     Dates: start: 20210521
  5. CHLORPHENIRAMINE/DEXTROMETHORPHAN/PHENYLEPHRI [Concomitant]
     Indication: Cough
     Route: 048
     Dates: start: 20210603
  6. FERROUS ASCORBATE;FOLIC ACID;MECOBALAMIN;ZINC SULFATE [Concomitant]
     Indication: Prophylaxis
     Route: 048
     Dates: start: 20211112
  7. CHLORPHENAMINE;PARACETAMOL;PHENYLEPHRINE;POTASSIUM CITRATE [Concomitant]
     Indication: Cough
     Route: 048
     Dates: start: 20220922
  8. HONITUS [Concomitant]
     Indication: Cough
     Route: 048
     Dates: start: 20220922

REACTIONS (1)
  - Rash [Recovered/Resolved]

NARRATIVE: CASE EVENT DATE: 20230310
